FAERS Safety Report 16571822 (Version 2)
Quarter: 2021Q4

REPORT INFORMATION
  Report Type: Spontaneous
  Country: US (occurrence: US)
  Receive Date: 20190715
  Receipt Date: 20211029
  Transmission Date: 20220304
  Serious: No
  Sender: FDA-Public Use
  Company Number: US-PFIZER INC-2019300512

PATIENT
  Age: 86 Year
  Sex: Female

DRUGS (4)
  1. LYRICA [Suspect]
     Active Substance: PREGABALIN
     Indication: Polyneuropathy
     Dosage: 200 MG, DAILY (TAKE 1 CAPSULE AM, 1 CAPSULE MIDDAY, AND 2 CAPS AT NIGHT FOR 2 WEEKS)
  2. LYRICA [Suspect]
     Active Substance: PREGABALIN
     Indication: Neuropathy peripheral
     Dosage: 250 MG, DAILY (INCREASE TO 2 CAPS AM, 1 CAP MIDDAY, AND 2 CAPS PM)
  3. LYRICA [Suspect]
     Active Substance: PREGABALIN
     Dosage: 50 MG, CYCLIC (TAKE 1 CAPSULE AM, 1 CAPSULE MIDDAY, AND 2 CAPS AT NIGHT FOR 2 WEEKS THEN INCREASE TO
     Dates: start: 20190603, end: 20190610
  4. LYRICA [Suspect]
     Active Substance: PREGABALIN
     Dosage: 100 MG, 2X/DAY
     Route: 048

REACTIONS (1)
  - Therapeutic product effect incomplete [Unknown]
